FAERS Safety Report 5244276-X (Version None)
Quarter: 2007Q1

REPORT INFORMATION
  Report Type: 
  Country: None (occurrence: None)
  Receive Date: 20070216
  Receipt Date: 20070202
  Transmission Date: 20070707
  Serious: Yes (Other)
  Sender: FDA-Public Use
  Company Number: 2006-01714

PATIENT
  Age: 65 Year
  Sex: Female
  Weight: 54 kg

DRUGS (1)
  1. VELCADE [Suspect]
     Indication: B-CELL LYMPHOMA
     Dosage: 2.40 MG, INTRAVENOUS
     Route: 042
     Dates: start: 20060110, end: 20060503

REACTIONS (6)
  - ANKLE FRACTURE [None]
  - COMPLEX REGIONAL PAIN SYNDROME [None]
  - INJURY [None]
  - OEDEMA PERIPHERAL [None]
  - PARAESTHESIA [None]
  - SENSATION OF PRESSURE [None]
